FAERS Safety Report 4501560-2 (Version None)
Quarter: 2004Q3

REPORT INFORMATION
  Report Type: 
  Country: None (occurrence: None)
  Receive Date: 20040928
  Receipt Date: 20040825
  Transmission Date: 20050211
  Serious: No
  Sender: FDA-Public Use
  Company Number: 04P-163-0271495-00

PATIENT
  Age: 50 Year
  Sex: Female
  Weight: 70.7611 kg

DRUGS (7)
  1. HUMIRA [Suspect]
     Indication: RHEUMATOID ARTHRITIS
     Dosage: 40 MG, 1 IN 2 WK, SUBCUTANEOUS
     Route: 058
     Dates: start: 20031101
  2. HYDROXYCHLOROQUINE PHOSPHATE [Concomitant]
  3. PERINDOPRIL ERBUMINE [Concomitant]
  4. HYDROCHLOROTHIAZIDE [Concomitant]
  5. CONJUGATED ESTROGEN [Concomitant]
  6. PROGESTERONE [Concomitant]
  7. NARINE REPETABS [Concomitant]

REACTIONS (5)
  - BLOOD PRESSURE INCREASED [None]
  - BLOOD URIC ACID INCREASED [None]
  - DRUG EFFECT DECREASED [None]
  - MUSCULOSKELETAL STIFFNESS [None]
  - NECK PAIN [None]
